FAERS Safety Report 4926295-3 (Version None)
Quarter: 2006Q1

REPORT INFORMATION
  Report Type: 
  Country: None (occurrence: None)
  Receive Date: 20060224
  Receipt Date: 20060224
  Transmission Date: 20060701
  Serious: Yes (Hospitalization)
  Sender: FDA-Public Use
  Company Number: None

PATIENT
  Sex: Male
  Weight: 18.8 kg

DRUGS (5)
  1. CARBOPLATIN [Suspect]
     Indication: NEUROBLASTOMA
     Dosage: 1280 MG
     Dates: start: 20060117, end: 20060120
  2. ETOPOSIDE [Suspect]
     Dosage: 1000 MG
     Dates: start: 20060117, end: 20060120
  3. G-CSF FILGRASTIM, AMGEN) [Suspect]
     Dosage: 2100 MCG
     Dates: start: 20060124, end: 20060212
  4. MELPHALAN [Suspect]
     Dosage: 150 MG
     Dates: start: 20060117, end: 20060119
  5. PBSC TRANSPLANT [Concomitant]

REACTIONS (6)
  - CHILLS [None]
  - COMPLICATIONS OF TRANSPLANT SURGERY [None]
  - LUNG INFILTRATION [None]
  - OXYGEN SATURATION DECREASED [None]
  - PYREXIA [None]
  - STEM CELL TRANSPLANT [None]
